FAERS Safety Report 26170533 (Version 1)
Quarter: 2025Q4

REPORT INFORMATION
  Report Type: Spontaneous
  Country: CA (occurrence: CA)
  Receive Date: 20251217
  Receipt Date: 20251217
  Transmission Date: 20260117
  Serious: Yes (Hospitalization)
  Sender: FRESENIUS KABI
  Company Number: CA-FreseniusKabi-FK202516891

PATIENT
  Age: 33 Year
  Sex: Female

DRUGS (1)
  1. USTEKINUMAB [Suspect]
     Active Substance: USTEKINUMAB
     Indication: Crohn^s disease
     Dosage: FOA-SOLUTION

REACTIONS (7)
  - Chills [Unknown]
  - Confusional state [Unknown]
  - Gastrointestinal stoma output abnormal [Unknown]
  - Swelling face [Unknown]
  - Swollen tongue [Unknown]
  - Temperature intolerance [Unknown]
  - Vomiting [Unknown]
